FAERS Safety Report 4907296-8 (Version None)
Quarter: 2006Q1

REPORT INFORMATION
  Report Type: 
  Country: None (occurrence: None)
  Receive Date: 20060208
  Receipt Date: 20060208
  Transmission Date: 20060701
  Serious: Yes (Hospitalization)
  Sender: FDA-Public Use
  Company Number: None

PATIENT
  Age: 87 Year
  Sex: Male
  Weight: 57.8 kg

DRUGS (15)
  1. SERTRALINE [Suspect]
     Indication: DEPRESSION
     Dosage: 100 MG PO DAILY
     Route: 048
     Dates: start: 20050915, end: 20051019
  2. ISOSORBIDE DINITRATE [Suspect]
     Indication: ANGINA PECTORIS
     Dosage: 40 MG PO TID
     Route: 048
     Dates: start: 19940101, end: 20050101
  3. NTG PATCH 0.2 MG/HR [Suspect]
     Indication: ANGINA PECTORIS
     Dosage: 1 PATCH /DAY
     Dates: start: 20050801, end: 20051001
  4. DIGOXIN [Concomitant]
  5. ASPIRIN [Concomitant]
  6. CLOPIDOGREL [Concomitant]
  7. FUROSEMIDE [Concomitant]
  8. METOPROLOL [Concomitant]
  9. OMEPRAZOLE [Concomitant]
  10. SIMVASTATIN [Concomitant]
  11. LEVOTHYROXINE SODIUM [Concomitant]
  12. DOCUSATE [Concomitant]
  13. CODEINE 30 MG /APAP [Concomitant]
  14. NITROGLYCERIN [Concomitant]
  15. BETAXOLOL [Concomitant]

REACTIONS (11)
  - ASTHENIA [None]
  - BLOOD PRESSURE ORTHOSTATIC ABNORMAL [None]
  - CONFUSIONAL STATE [None]
  - DEPRESSION [None]
  - DIZZINESS [None]
  - FALL [None]
  - FATIGUE [None]
  - HEAD INJURY [None]
  - HYPERSOMNIA [None]
  - SOMNOLENCE [None]
  - WEIGHT DECREASED [None]
